FAERS Safety Report 9539651 (Version 1)
Quarter: 2013Q3

REPORT INFORMATION
  Report Type: Report from Study
  Country: IN (occurrence: IN)
  Receive Date: 20130920
  Receipt Date: 20130920
  Transmission Date: 20140515
  Serious: Yes (Death)
  Sender: FDA-Public Use
  Company Number: PHHY2013IN104941

PATIENT
  Age: 54 Year
  Sex: Female

DRUGS (1)
  1. SANDOSTATIN LAR [Suspect]
     Indication: LUNG NEOPLASM MALIGNANT
     Dosage: 30 MG, UNK
     Route: 030
     Dates: start: 20130629

REACTIONS (1)
  - Death [Fatal]
